FAERS Safety Report 17649366 (Version 1)
Quarter: 2020Q2

REPORT INFORMATION
  Report Type: Spontaneous
  Country: JP (occurrence: JP)
  Receive Date: 20200408
  Receipt Date: 20200408
  Transmission Date: 20200713
  Serious: Yes (Hospitalization)
  Sender: FDA-Public Use
  Company Number: JP-FERRINGPH-2020FE02194

PATIENT

DRUGS (1)
  1. MINIRINMELT [Suspect]
     Active Substance: DESMOPRESSIN ACETATE
     Indication: DIABETES INSIPIDUS
     Dosage: ONE QUARTER AND A HALF OF THE TABLET IN MORNING AND EVENING (45 UG EVERY 12 HOURS)
     Route: 048

REACTIONS (2)
  - General physical health deterioration [Unknown]
  - Wrong technique in product usage process [Unknown]
